FAERS Safety Report 8600477-1 (Version None)
Quarter: 2012Q3

REPORT INFORMATION
  Report Type: 
  Country: None (occurrence: None)
  Receive Date: 20120808
  Receipt Date: 20120808
  Transmission Date: 20120928
  Serious: Yes (Life-Threatening)
  Sender: FDA-Public Use
  Company Number: None

PATIENT
  Sex: Male
  Weight: 148 kg

DRUGS (3)
  1. INCIVEK [Suspect]
     Indication: HIV INFECTION
     Dosage: 2 TABLETS 3 TIMES A DAY 7 TO 9 HOURS APART
  2. RIBAVIRIN [Suspect]
     Indication: HIV INFECTION
     Dosage: TWICE A DAY
     Dates: end: 20120312
  3. PEGASYS [Suspect]
     Indication: HEPATITIS C
     Dosage: 1 A WEEK
     Dates: start: 20120112

REACTIONS (2)
  - LOSS OF CONSCIOUSNESS [None]
  - CHROMATOPSIA [None]
